FAERS Safety Report 23090012 (Version 1)
Quarter: 2023Q4

REPORT INFORMATION
  Report Type: Spontaneous
  Country: AT (occurrence: AT)
  Receive Date: 20231020
  Receipt Date: 20231020
  Transmission Date: 20240109
  Serious: Yes (Life-Threatening, Hospitalization)
  Sender: FDA-Public Use
  Company Number: AT-PFIZER INC-PV202300168140

PATIENT
  Sex: Male
  Weight: 0.56 kg

DRUGS (10)
  1. FLUCONAZOLE [Suspect]
     Active Substance: FLUCONAZOLE
     Indication: Bacterial vaginosis
     Dosage: UNK
     Route: 064
  2. FLUCONAZOLE [Suspect]
     Active Substance: FLUCONAZOLE
     Indication: Vulvovaginal candidiasis
  3. CLINDAMYCIN [Suspect]
     Active Substance: CLINDAMYCIN
     Indication: Bacterial vaginosis
     Dosage: UNK
     Route: 064
  4. CLINDAMYCIN [Suspect]
     Active Substance: CLINDAMYCIN
     Indication: Vulvovaginal candidiasis
  5. CEFUROXIME [Suspect]
     Active Substance: CEFUROXIME
     Indication: Bacterial vaginosis
     Dosage: UNK
     Route: 064
  6. CEFUROXIME [Suspect]
     Active Substance: CEFUROXIME
     Indication: Vulvovaginal candidiasis
  7. METRONIDAZOLE [Suspect]
     Active Substance: METRONIDAZOLE
     Indication: Foetal therapeutic procedure
     Dosage: UNK
     Route: 064
  8. BETAMETHASONE [Suspect]
     Active Substance: BETAMETHASONE
     Indication: Bacterial vaginosis
     Dosage: 12 MG, 2 DOSES
     Route: 064
  9. BETAMETHASONE [Suspect]
     Active Substance: BETAMETHASONE
     Indication: Vulvovaginal candidiasis
  10. MAGNESIUM SULFATE [Suspect]
     Active Substance: MAGNESIUM SULFATE\MAGNESIUM SULFATE HEPTAHYDRATE
     Indication: Nervous system disorder prophylaxis
     Dosage: UNK
     Route: 064

REACTIONS (2)
  - Maternal exposure during pregnancy [Unknown]
  - Premature baby [Unknown]
